FAERS Safety Report 5726110-4 (Version None)
Quarter: 2008Q2

REPORT INFORMATION
  Report Type: 
  Country: None (occurrence: None)
  Receive Date: 20080502
  Receipt Date: 20080423
  Transmission Date: 20081010
  Serious: Yes (Hospitalization)
  Sender: FDA-Public Use
  Company Number: US-ROCHE-496609

PATIENT
  Sex: Male
  Weight: 62.6 kg

DRUGS (26)
  1. BONIVA [Suspect]
     Indication: DRUG USE FOR UNKNOWN INDICATION
     Dosage: AT THE TIME OF THE REPORT, HE HAD TAKEN HIS 2ND DOSE ON APRIL 23RD.
     Route: 065
  2. TOPROL-XL [Concomitant]
  3. LOTREL [Concomitant]
     Dosage: DRUG REPORTED AS LOTREL 5.10 MG DAILY
  4. LOTREL [Concomitant]
     Dosage: DRUG REPORTED AS LOTREL 5.10 MG DAILY
  5. ZOCOR [Concomitant]
  6. NEXIUM [Concomitant]
  7. ISOSORBIDE DINITRATE [Concomitant]
     Dosage: DRUG REPORTED AS ISOSORBIDE 30 MG.
  8. WELLBUTRIN [Concomitant]
     Dosage: DRUG REPORTED AS WELLBUTRIN 150 MG.
  9. VITACON FORTE [Concomitant]
  10. VITACON FORTE [Concomitant]
  11. VITACON FORTE [Concomitant]
  12. VITACON FORTE [Concomitant]
  13. VITACON FORTE [Concomitant]
  14. VITACON FORTE [Concomitant]
  15. VITACON FORTE [Concomitant]
  16. VITACON FORTE [Concomitant]
  17. VITACON FORTE [Concomitant]
  18. UNSPECIFIED DRUG [Concomitant]
     Dosage: THIS UNSPECIFIED MEDICATION REPLACED NEXIUM.
  19. OMEPRAZOLE [Concomitant]
  20. EXELON [Concomitant]
  21. FLOMAX [Concomitant]
  22. FLOMAX [Concomitant]
  23. LISINOPRIL [Concomitant]
  24. CENTRUM [Concomitant]
  25. CENTRUM [Concomitant]
  26. AMLODIPINE [Concomitant]

REACTIONS (4)
  - CHEST PAIN [None]
  - LOSS OF CONSCIOUSNESS [None]
  - MEMORY IMPAIRMENT [None]
  - WEIGHT DECREASED [None]
